FAERS Safety Report 9054894 (Version 2)
Quarter: 2013Q2

REPORT INFORMATION
  Report Type: Spontaneous
  Country: FR (occurrence: FR)
  Receive Date: 20130208
  Receipt Date: 20130522
  Transmission Date: 20140414
  Serious: Yes (Hospitalization)
  Sender: FDA-Public Use
  Company Number: FR-JNJFOC-20130116907

PATIENT
  Age: 54 Year
  Sex: Female

DRUGS (19)
  1. RISPERDAL CONSTA [Suspect]
     Indication: MENTAL RETARDATION
     Dosage: 50 MG/2 ML
     Route: 030
     Dates: start: 20130104, end: 20130104
  2. RISPERDAL CONSTA [Suspect]
     Indication: CHILDHOOD PSYCHOSIS
     Dosage: 50 MG/2 ML
     Route: 030
     Dates: start: 20130104, end: 20130104
  3. RISPERDAL [Suspect]
     Indication: MENTAL RETARDATION
     Route: 048
  4. RISPERDAL [Suspect]
     Indication: CHILDHOOD PSYCHOSIS
     Route: 048
  5. LOXAPAC [Suspect]
     Indication: PRODUCT USED FOR UNKNOWN INDICATION
     Route: 048
     Dates: start: 20130103, end: 20130119
  6. CLOZAPINE [Suspect]
     Indication: PRODUCT USED FOR UNKNOWN INDICATION
     Route: 048
  7. CLOZAPINE [Suspect]
     Indication: PRODUCT USED FOR UNKNOWN INDICATION
     Route: 048
     Dates: start: 20130207, end: 20130214
  8. RENITEC (ENALAPRIL) [Concomitant]
     Indication: HYPERTENSION
     Dosage: 20 (UNSPECIIFED UNITS) MORNING
     Route: 065
  9. FLUDEX [Concomitant]
     Indication: HYPERTENSION
     Dosage: 2.5 (UNSPECIFIED UNITS) MORNING
     Route: 065
  10. HYPERIUM [Concomitant]
     Indication: HYPERTENSION
     Dosage: EVENING
     Route: 065
  11. SEROPLEX [Concomitant]
     Indication: PRODUCT USED FOR UNKNOWN INDICATION
     Route: 048
     Dates: start: 20130208
  12. SEROPLEX [Concomitant]
     Indication: PRODUCT USED FOR UNKNOWN INDICATION
     Dosage: MORNING
     Route: 048
     Dates: end: 20130124
  13. SEROPLEX [Concomitant]
     Indication: PRODUCT USED FOR UNKNOWN INDICATION
     Route: 048
  14. THERALENE [Concomitant]
     Indication: PRODUCT USED FOR UNKNOWN INDICATION
     Dosage: 20 DROPS AT NIGHT IF NEEDED
     Route: 065
  15. TAHOR [Concomitant]
     Indication: PRODUCT USED FOR UNKNOWN INDICATION
     Dosage: 10 (UNSPECIFIED UNITS) MORNING
     Route: 065
  16. SERESTA [Concomitant]
     Indication: PRODUCT USED FOR UNKNOWN INDICATION
     Dosage: 1 TABLET IN THE MORNING, AT NOON AND IN THE EVENING
     Route: 065
  17. DOLIPRANE [Concomitant]
     Indication: PRODUCT USED FOR UNKNOWN INDICATION
     Dosage: ON DEMAND
     Route: 065
  18. FORLAX [Concomitant]
     Indication: PRODUCT USED FOR UNKNOWN INDICATION
     Dosage: MORNING AND AT NOON
     Route: 065
  19. DIFFU K [Concomitant]
     Indication: PRODUCT USED FOR UNKNOWN INDICATION
     Dosage: MORNING, NOON AND EVENING
     Route: 065

REACTIONS (1)
  - Neuroleptic malignant syndrome [Recovered/Resolved]
